FAERS Safety Report 5904849-5 (Version None)
Quarter: 2008Q4

REPORT INFORMATION
  Report Type: 
  Country: None (occurrence: None)
  Receive Date: 20081001
  Receipt Date: 20080926
  Transmission Date: 20090506
  Serious: Yes (Death, Hospitalization)
  Sender: FDA-Public Use
  Company Number: A0731801A

PATIENT
  Age: 51 Year
  Sex: Female
  Weight: 181.8 kg

DRUGS (1)
  1. AVANDIA [Suspect]
     Dosage: 8MG PER DAY
     Route: 048
     Dates: start: 20030301, end: 20060225

REACTIONS (5)
  - CARDIAC FAILURE CONGESTIVE [None]
  - CHEST DISCOMFORT [None]
  - MYALGIA [None]
  - MYOCARDIAL INFARCTION [None]
  - RESPIRATORY RATE DECREASED [None]
